FAERS Safety Report 19519079 (Version 1)
Quarter: 2021Q3

REPORT INFORMATION
  Report Type: Spontaneous
  Country: US (occurrence: US)
  Receive Date: 20210711
  Receipt Date: 20210711
  Transmission Date: 20211014
  Serious: No
  Sender: FDA-Public Use
  Company Number: None

PATIENT
  Age: 30 Year
  Sex: Female
  Weight: 72.58 kg

DRUGS (1)
  1. NEXPLANON [Suspect]
     Active Substance: ETONOGESTREL
     Dates: start: 20200715, end: 20210708

REACTIONS (12)
  - Weight increased [None]
  - Insomnia [None]
  - Rash [None]
  - Feeling abnormal [None]
  - Anxiety [None]
  - Depression [None]
  - Suicidal ideation [None]
  - Photosensitivity reaction [None]
  - Tenderness [None]
  - Renal pain [None]
  - Panic attack [None]
  - Breast pain [None]
